FAERS Safety Report 5381117-4 (Version None)
Quarter: 2007Q3

REPORT INFORMATION
  Report Type: 
  Country: None (occurrence: None)
  Receive Date: 20070706
  Receipt Date: 20070625
  Transmission Date: 20080115
  Serious: Yes (Other)
  Sender: FDA-Public Use
  Company Number: US-SHR-US-2007-018226

PATIENT
  Age: 54 Year
  Sex: Female
  Weight: 63.492 kg

DRUGS (9)
  1. BETASERON [Suspect]
     Indication: RELAPSING-REMITTING MULTIPLE SCLEROSIS
     Dosage: 2 MIU, EVERY 2D
     Route: 058
     Dates: start: 20070429, end: 20070509
  2. PROVIGIL [Concomitant]
     Dosage: 200 MG, 1X/DAY, AM
     Route: 048
     Dates: start: 20040101
  3. PREMPRO [Concomitant]
     Indication: MENOPAUSE
     Dosage: UNK MG, 1X/DAY
     Route: 048
     Dates: start: 20060301
  4. TYLENOL [Concomitant]
     Indication: INSOMNIA
     Dosage: UNK, 1X/DAY
     Route: 048
     Dates: start: 20040101
  5. TYLENOL [Concomitant]
     Indication: ARTHRITIS
     Dosage: UNK, 1X/DAY
     Route: 048
     Dates: start: 20050101
  6. ASPIRIN [Concomitant]
     Dosage: 85 MG, 1X/DAY
     Dates: start: 20060101
  7. CALCIUM + D [Concomitant]
     Dosage: 60 MG, 1X/DAY
     Dates: start: 20040101
  8. ASCORBIC ACID [Concomitant]
     Dosage: 1000 MG, 1X/DAY
     Dates: start: 20060101
  9. MULTIVIT [Concomitant]
     Dosage: UNK, 1X/DAY
     Dates: start: 20060101

REACTIONS (6)
  - APATHY [None]
  - DEPRESSION [None]
  - FATIGUE [None]
  - INFLUENZA LIKE ILLNESS [None]
  - INJECTION SITE REACTION [None]
  - SUICIDAL IDEATION [None]
